FAERS Safety Report 10098704 (Version 1)
Quarter: 2014Q2

REPORT INFORMATION
  Report Type: Report from Study
  Country: CN (occurrence: CN)
  Receive Date: 20140423
  Receipt Date: 20140423
  Transmission Date: 20141212
  Serious: Yes (Other)
  Sender: FDA-Public Use
  Company Number: CN-ROCHE-1384192

PATIENT
  Age: 61 Year
  Sex: Male

DRUGS (10)
  1. TRASTUZUMAB [Suspect]
     Indication: HER-2 POSITIVE GASTRIC CANCER
     Dosage: 8MG/KG DAY 1
     Route: 065
     Dates: start: 20110922, end: 20110922
  2. TRASTUZUMAB [Suspect]
     Dosage: 6MG/KG DAY 1
     Route: 065
     Dates: start: 20111013, end: 20120712
  3. TRASTUZUMAB [Suspect]
     Route: 065
     Dates: start: 20120817, end: 20120907
  4. CAPECITABINE [Suspect]
     Indication: HER-2 POSITIVE GASTRIC CANCER
     Dosage: 2000MG/ME2 DAY 1-DAY 14
     Route: 065
     Dates: start: 20110922, end: 20120712
  5. DOCETAXEL [Concomitant]
     Indication: HER-2 POSITIVE GASTRIC CANCER
     Route: 065
     Dates: start: 20120817, end: 20120907
  6. OXALIPLATIN [Concomitant]
     Indication: HER-2 POSITIVE GASTRIC CANCER
     Dosage: 130MG/ME2 DAY 1
     Route: 065
     Dates: start: 20110922, end: 20110922
  7. OXALIPLATIN [Concomitant]
     Dosage: 130MG/ME2 DAY 1
     Route: 065
     Dates: start: 20111013, end: 20111013
  8. OXALIPLATIN [Concomitant]
     Dosage: 130MG/ME2 DAY 1
     Route: 065
     Dates: start: 20111107, end: 20120120
  9. CIS-PLATINUM [Concomitant]
     Indication: HER-2 POSITIVE GASTRIC CANCER
     Route: 065
     Dates: start: 20120817, end: 20120907
  10. 5-FLUOROURACIL [Concomitant]
     Indication: HER-2 POSITIVE GASTRIC CANCER
     Route: 065
     Dates: start: 20120817, end: 20120907

REACTIONS (7)
  - Jaundice cholestatic [Recovering/Resolving]
  - White blood cell count decreased [Unknown]
  - Neurotoxicity [Unknown]
  - Platelet count decreased [Unknown]
  - Pyrexia [Unknown]
  - Decreased appetite [Unknown]
  - Asthenia [Unknown]
